FAERS Safety Report 19148624 (Version 1)
Quarter: 2021Q2

REPORT INFORMATION
  Report Type: Spontaneous
  Country: US (occurrence: US)
  Receive Date: 20210416
  Receipt Date: 20210416
  Transmission Date: 20210717
  Serious: No
  Sender: FDA-Public Use
  Company Number: US-BAUSCH-BL-2021-009124

PATIENT
  Age: 69 Year
  Sex: Male

DRUGS (2)
  1. PYRIDOSTIGMINE BROMIDE EXTENDEDRELEASE TABLETS [Suspect]
     Active Substance: PYRIDOSTIGMINE BROMIDE
     Indication: MYASTHENIA GRAVIS
     Dosage: EXTENDED?RELEASE TABLETS, STARTED  APPROXIMATELY 2 MONTHS AGO,  ONCE NIGHTLY
     Route: 048
     Dates: start: 2021, end: 2021
  2. FLOMAX [Concomitant]
     Active Substance: TAMSULOSIN HYDROCHLORIDE
     Indication: PRODUCT USED FOR UNKNOWN INDICATION

REACTIONS (6)
  - Rhinorrhoea [Recovered/Resolved]
  - Fatigue [Not Recovered/Not Resolved]
  - Pollakiuria [Recovered/Resolved]
  - Muscle discomfort [Recovered/Resolved]
  - Muscle twitching [Recovered/Resolved]
  - Lacrimation increased [Recovered/Resolved]

NARRATIVE: CASE EVENT DATE: 2021
